FAERS Safety Report 9391527 (Version 1)
Quarter: 2013Q3

REPORT INFORMATION
  Report Type: Spontaneous
  Country: US (occurrence: US)
  Receive Date: 20130709
  Receipt Date: 20130709
  Transmission Date: 20140515
  Serious: Yes (Other)
  Sender: FDA-Public Use
  Company Number: US-BAYER-2013-079855

PATIENT
  Age: 73 Year
  Sex: Male

DRUGS (5)
  1. NAPROXEN SODIUM ({= 220 MG) [Suspect]
     Indication: ARTHRALGIA
  2. FELDENE [Suspect]
     Indication: BACK PAIN
  3. FUROSEMIDE [Concomitant]
  4. ASPIRIN [Concomitant]
  5. ATORVASTATIN [Concomitant]

REACTIONS (3)
  - Glomerulonephritis membranous [Recovering/Resolving]
  - Local swelling [Recovering/Resolving]
  - Weight increased [Recovering/Resolving]
